FAERS Safety Report 15728872 (Version 1)
Quarter: 2018Q4

REPORT INFORMATION
  Report Type: Spontaneous
  Country: US (occurrence: US)
  Receive Date: 20181217
  Receipt Date: 20181217
  Transmission Date: 20190205
  Serious: No
  Sender: FDA-Public Use
  Company Number: US-IPSEN BIOPHARMACEUTICALS, INC.-2018-18784

PATIENT
  Age: 31 Year
  Sex: Female

DRUGS (3)
  1. DYSPORT [Suspect]
     Active Substance: ABOBOTULINUMTOXINA
     Indication: SKIN WRINKLING
     Dosage: DAILY DOSE- 90 UNITS AND THE SIZE OF THE VIAL WAS 300 UNITS.?VOLUME RATIO 3:1 WITH 0.9% DILUTION WIT
     Dates: start: 20181019, end: 20181019
  2. DYSPORT [Suspect]
     Active Substance: ABOBOTULINUMTOXINA
     Indication: OFF LABEL USE
  3. DYSPORT [Suspect]
     Active Substance: ABOBOTULINUMTOXINA
     Indication: SKIN WRINKLING
     Dosage: DAILY DOSE- 90 UNITS AND THE SIZE OF THE VIAL WAS 300 UNITS.?VOLUME RATIO 3:1 WITH 0.9% DILUTION WIT
     Dates: start: 20181106, end: 20181106

REACTIONS (4)
  - Off label use [Unknown]
  - Drug effect decreased [Unknown]
  - Intentional product use issue [Unknown]
  - Overdose [Unknown]

NARRATIVE: CASE EVENT DATE: 20181106
